FAERS Safety Report 11981625 (Version 2)
Quarter: 2016Q2

REPORT INFORMATION
  Report Type: Report from Study
  Country: KR (occurrence: KR)
  Receive Date: 20160131
  Receipt Date: 20160505
  Transmission Date: 20160815
  Serious: Yes (Hospitalization)
  Sender: FDA-Public Use
  Company Number: PHHY2016KR009210

PATIENT
  Age: 69 Year
  Sex: Female

DRUGS (4)
  1. TASIGNA [Suspect]
     Active Substance: NILOTINIB
     Dosage: 400 MG, QD
     Route: 048
     Dates: start: 20130603, end: 20130701
  2. GLIVEC [Suspect]
     Active Substance: IMATINIB MESYLATE
     Indication: CHRONIC MYELOID LEUKAEMIA
     Dosage: 400 MG, QD
     Route: 048
     Dates: start: 20111123, end: 201202
  3. TASIGNA [Suspect]
     Active Substance: NILOTINIB
     Indication: CHRONIC MYELOID LEUKAEMIA
     Dosage: 800 MG, BID
     Route: 048
     Dates: start: 201202, end: 20130602
  4. TASIGNA [Suspect]
     Active Substance: NILOTINIB
     Dosage: 600 MG, BID
     Route: 048
     Dates: start: 20130702, end: 201601

REACTIONS (10)
  - Motor dysfunction [Unknown]
  - Dizziness [Recovering/Resolving]
  - Balance disorder [Unknown]
  - Hypoaesthesia [Not Recovered/Not Resolved]
  - Gait disturbance [Unknown]
  - Sensory loss [Unknown]
  - Cerebral infarction [Not Recovered/Not Resolved]
  - Coordination abnormal [Unknown]
  - Hemiparesis [Unknown]
  - Fall [Unknown]

NARRATIVE: CASE EVENT DATE: 201601
